FAERS Safety Report 9574995 (Version 1)
Quarter: 2013Q4

REPORT INFORMATION
  Report Type: Spontaneous
  Country: GB (occurrence: GB)
  Receive Date: 20131001
  Receipt Date: 20131001
  Transmission Date: 20140711
  Serious: Yes (Hospitalization)
  Sender: FDA-Public Use
  Company Number: PHHY2013GB106198

PATIENT
  Age: 56 Year
  Sex: Female

DRUGS (3)
  1. HALOPERIDOL [Suspect]
     Indication: EXTRAPYRAMIDAL DISORDER
     Route: 065
  2. RISPERIDONE [Suspect]
     Dosage: 6 MG, UNK
     Route: 048
  3. RISPERIDONE [Suspect]
     Dosage: 3 MG, UNK
     Route: 048

REACTIONS (5)
  - Paranoia [Unknown]
  - Eating disorder [Unknown]
  - Hallucination, auditory [Unknown]
  - Treatment noncompliance [Unknown]
  - Off label use [Unknown]
